FAERS Safety Report 21088166 (Version 13)
Quarter: 2023Q2

REPORT INFORMATION
  Report Type: Spontaneous
  Country: ES (occurrence: ES)
  Receive Date: 20220715
  Receipt Date: 20230414
  Transmission Date: 20230721
  Serious: Yes (Life-Threatening, Hospitalization, Other)
  Sender: FDA-Public Use
  Company Number: ES-AUROBINDO-AUR-APL-2022-024630

PATIENT
  Age: 52 Year
  Sex: Male

DRUGS (44)
  1. QUETIAPINE [Interacting]
     Active Substance: QUETIAPINE
     Indication: Antipsychotic therapy
     Dosage: 300 MG,2 TIMES DAY(EVERY 12 HR),300 MG/12H
     Route: 065
     Dates: start: 20170426
  2. QUETIAPINE [Interacting]
     Active Substance: QUETIAPINE
     Indication: Schizophrenia
  3. FENOFIBRATE [Suspect]
     Active Substance: FENOFIBRATE
     Indication: Product used for unknown indication
     Dosage: UNK
     Route: 065
  4. DARUNAVIR [Interacting]
     Active Substance: DARUNAVIR
     Indication: HIV infection
     Dosage: (600 MG EVERY 12 HOUR), 600MG/12H
     Route: 065
     Dates: start: 20100824
  5. DARUNAVIR [Interacting]
     Active Substance: DARUNAVIR
     Dosage: UNK
     Route: 065
     Dates: start: 20140527
  6. LORMETAZEPAM [Concomitant]
     Active Substance: LORMETAZEPAM
     Indication: Insomnia
     Dosage: 2 MG,ONCE A DAY(EVERY 24 HOUR)2MG /24H
     Route: 065
     Dates: start: 20171216
  7. LORMETAZEPAM [Concomitant]
     Active Substance: LORMETAZEPAM
     Indication: Hypnotherapy
  8. ZOLPIDEM [Concomitant]
     Active Substance: ZOLPIDEM TARTRATE
     Indication: Insomnia
     Dosage: 10 MG,ONCE A DAY (EVERY 24 HOUR),10MG/24H
     Route: 065
     Dates: start: 20190313
  9. ZOLPIDEM [Concomitant]
     Active Substance: ZOLPIDEM TARTRATE
     Indication: Hypnotherapy
  10. OMEPRAZOLE [Concomitant]
     Active Substance: OMEPRAZOLE
     Indication: Gastric ulcer
     Dosage: 40 MG,ONCE A DAY( EVERY 24 HOUR),40MG/24H
     Route: 065
     Dates: start: 20191127
  11. OMEPRAZOLE [Concomitant]
     Active Substance: OMEPRAZOLE
     Indication: Ulcer
  12. OMEPRAZOLE [Concomitant]
     Active Substance: OMEPRAZOLE
     Indication: Prophylaxis against gastrointestinal ulcer
  13. CLORAZEPIC ACID [Concomitant]
     Active Substance: CLORAZEPIC ACID
     Indication: Anxiolytic therapy
     Dosage: 15 MG, 4.5  HOURS,15 MG/4.5H
     Route: 065
     Dates: start: 20190221
  14. CLORAZEPIC ACID [Concomitant]
     Active Substance: CLORAZEPIC ACID
     Indication: Anxiety
  15. ETRAVIRINE [Concomitant]
     Active Substance: ETRAVIRINE
     Indication: HIV infection
     Dosage: 200 MG,ONCE A DAY(EVERY 24 HOUR)
     Route: 065
     Dates: start: 20140527
  16. GABAPENTIN [Concomitant]
     Active Substance: GABAPENTIN
     Indication: Analgesic therapy
     Dosage: 1800 MG, QD (600 MG, 3 TIMES A DAY)
     Route: 065
     Dates: start: 20211015
  17. GABAPENTIN [Concomitant]
     Active Substance: GABAPENTIN
     Indication: Pain
  18. GABAPENTIN [Concomitant]
     Active Substance: GABAPENTIN
     Indication: Product used for unknown indication
  19. INSULIN ASPART [Concomitant]
     Active Substance: INSULIN ASPART
     Indication: Diabetes mellitus
     Dosage: 10 IU, 3 TIMES A DAY (EVERY 8 HOUR),10 IU/8H
     Route: 065
     Dates: start: 20200707
  20. INSULIN ASPART [Concomitant]
     Active Substance: INSULIN ASPART
     Indication: Metabolic syndrome
  21. INSULIN ASPART [Concomitant]
     Active Substance: INSULIN ASPART
     Indication: Diabetes prophylaxis
  22. INSULIN GLARGINE [Concomitant]
     Active Substance: INSULIN GLARGINE
     Indication: Diabetes mellitus
     Dosage: 60 IU, ONCE A DAY (EVERY 24 HOUR),600IU/24H
     Route: 065
     Dates: start: 20190527
  23. INSULIN GLARGINE [Concomitant]
     Active Substance: INSULIN GLARGINE
     Indication: Metabolic syndrome
  24. DULAGLUTIDE [Concomitant]
     Active Substance: DULAGLUTIDE
     Indication: Diabetes mellitus
     Dosage: 1.5 MILLIGRAM, QW, 1.5 MG/7D
     Route: 065
     Dates: start: 20190529
  25. DULAGLUTIDE [Concomitant]
     Active Substance: DULAGLUTIDE
     Indication: Metabolic syndrome
     Dosage: 5 MILLIGRAM, QW (5 MILLIGRAM/ 7 D
     Route: 065
     Dates: start: 20190529
  26. DULAGLUTIDE [Concomitant]
     Active Substance: DULAGLUTIDE
     Indication: Diabetes prophylaxis
  27. FENOFIBRATE [Concomitant]
     Active Substance: FENOFIBRATE
     Indication: Lipids decreased
     Dosage: 145 MILLIGRAM,ONCE A DAY(EVERY 24 HOUR)
     Route: 065
     Dates: start: 20200420
  28. FENOFIBRATE [Concomitant]
     Active Substance: FENOFIBRATE
     Indication: Hyperlipidaemia
  29. FENOFIBRATE [Concomitant]
     Active Substance: FENOFIBRATE
     Indication: Metabolic syndrome
  30. FENOFIBRATE [Concomitant]
     Active Substance: FENOFIBRATE
     Indication: Lipids abnormal
  31. ACETAMINOPHEN [Concomitant]
     Active Substance: ACETAMINOPHEN
     Indication: Analgesic drug level
     Dosage: 1 GRAM,2 TIMES A DAY; (1 GRAM EVERY 12 HOUR)
     Route: 065
     Dates: start: 20210721
  32. ACETAMINOPHEN [Concomitant]
     Active Substance: ACETAMINOPHEN
     Indication: Pain
     Dosage: 1 GRAM, BID (1 GRAM EVERY 12 HOUR)
     Route: 065
     Dates: start: 20210721
  33. ACETAMINOPHEN [Concomitant]
     Active Substance: ACETAMINOPHEN
     Indication: Product used for unknown indication
  34. ACETAMINOPHEN [Concomitant]
     Active Substance: ACETAMINOPHEN
     Indication: Analgesic therapy
  35. ROSUVASTATIN [Concomitant]
     Active Substance: ROSUVASTATIN
     Indication: Lipids decreased
     Dosage: 5 MG,ONCE A DAY(EVERY 24 HOUR),5MG/24H
     Route: 065
     Dates: start: 20180511
  36. ROSUVASTATIN [Concomitant]
     Active Substance: ROSUVASTATIN
     Indication: Hyperlipidaemia
  37. ROSUVASTATIN [Concomitant]
     Active Substance: ROSUVASTATIN
     Indication: Metabolic syndrome
  38. ROSUVASTATIN [Concomitant]
     Active Substance: ROSUVASTATIN
     Indication: Lipids abnormal
  39. METAMIZOLE [Concomitant]
     Active Substance: METAMIZOLE
     Indication: Analgesic therapy
     Dosage: 575 MG, 3 TIMES A DAY
     Route: 065
     Dates: start: 20210705
  40. METAMIZOLE [Concomitant]
     Active Substance: METAMIZOLE
     Indication: Pain
     Dosage: 575 MG, Q8H (575 MGEVERY 8 HOUR)
     Route: 065
     Dates: start: 20210707
  41. METAMIZOLE [Concomitant]
     Active Substance: METAMIZOLE
     Indication: Product used for unknown indication
  42. LOSARTAN [Concomitant]
     Active Substance: LOSARTAN
     Indication: Hypertension
     Dosage: 100 MG,ONCE A DAY(EVERY 24 HOUR,100MG/24H)
     Route: 065
     Dates: start: 20181013
  43. LOSARTAN [Concomitant]
     Active Substance: LOSARTAN
     Indication: Metabolic syndrome
  44. CLORAZEPATE DIPOTASSIUM [Concomitant]
     Active Substance: CLORAZEPATE DIPOTASSIUM
     Indication: Anxiolytic therapy
     Dosage: 5 MG, EVERY 4 AND HALF HOURS
     Route: 065
     Dates: start: 20190221

REACTIONS (10)
  - Confusional state [Recovered/Resolved]
  - Tachycardia [Recovered/Resolved]
  - Agitation [Recovered/Resolved]
  - Insomnia [Recovered/Resolved]
  - Restlessness [Recovered/Resolved]
  - Nervousness [Recovered/Resolved]
  - Antipsychotic drug level increased [Unknown]
  - Extra dose administered [Unknown]
  - Drug level increased [Unknown]
  - Drug interaction [Recovered/Resolved]
